FAERS Safety Report 11538801 (Version 5)
Quarter: 2017Q4

REPORT INFORMATION
  Report Type: Report from Study
  Country: PL (occurrence: PL)
  Receive Date: 20150923
  Receipt Date: 20171006
  Transmission Date: 20180320
  Serious: Yes (Hospitalization)
  Sender: FDA-Public Use
  Company Number: PL-UCBSA-2015029637

PATIENT
  Age: 64 Year
  Sex: Male
  Weight: 90.1 kg

DRUGS (9)
  1. CLEXANE [Concomitant]
     Active Substance: ENOXAPARIN SODIUM
     Indication: CONTUSION
     Dosage: 0.6 G, UNK
     Route: 058
     Dates: start: 20150914, end: 20150929
  2. METRONIDAZOL [Concomitant]
     Active Substance: METRONIDAZOLE
     Indication: CONTUSION
     Dosage: UNK
     Route: 042
     Dates: start: 20150914, end: 201509
  3. KLIMICIN [Concomitant]
     Active Substance: CLINDAMYCIN PHOSPHATE
     Indication: CONTUSION
     Dosage: 600 MG, UNK
     Route: 042
     Dates: start: 201509, end: 20150928
  4. TAZIME [Concomitant]
     Indication: CONTUSION
     Dosage: 1.5 G, UNK
     Route: 042
     Dates: start: 20150914, end: 201509
  5. CERTOLIZUMAB PEGOL [Suspect]
     Active Substance: CERTOLIZUMAB PEGOL
     Indication: PSORIASIS
     Dosage: 400 MG, EV 2 WEEKS(QOW)
     Route: 058
     Dates: start: 20150714, end: 20160619
  6. CERTOLIZUMAB PEGOL [Suspect]
     Active Substance: CERTOLIZUMAB PEGOL
     Dosage: 200 MG, EV 2 WEEKS(QOW)
     Route: 058
     Dates: start: 20160620
  7. REPARIL [Concomitant]
     Indication: CONTUSION
     Dosage: 40 MG, 3X1
     Route: 048
     Dates: start: 20150902, end: 20150903
  8. HEPARIN SODIUM. [Concomitant]
     Active Substance: HEPARIN SODIUM
     Indication: CONTUSION
     Dosage: 1 APPLICATION 3X1
     Route: 061
     Dates: start: 20150902, end: 20150903
  9. VOLTAREN [Concomitant]
     Active Substance: DICLOFENAC SODIUM
     Indication: CONTUSION
     Dosage: 1 APPLICATION 3X1
     Route: 061
     Dates: start: 20150902, end: 20150903

REACTIONS (5)
  - Haematoma infection [Recovered/Resolved]
  - Abdominal abscess [Recovered/Resolved]
  - Penile swelling [Recovered/Resolved]
  - Contusion [Recovered/Resolved]
  - Scrotal swelling [Recovered/Resolved]

NARRATIVE: CASE EVENT DATE: 20150914
